APPROVED DRUG PRODUCT: PRAMIPEXOLE DIHYDROCHLORIDE
Active Ingredient: PRAMIPEXOLE DIHYDROCHLORIDE
Strength: 3MG
Dosage Form/Route: TABLET, EXTENDED RELEASE;ORAL
Application: A206156 | Product #005 | TE Code: AB
Applicant: MACLEODS PHARMACEUTICALS LTD
Approved: Jun 24, 2016 | RLD: No | RS: No | Type: RX